FAERS Safety Report 6860307-5 (Version None)
Quarter: 2010Q3

REPORT INFORMATION
  Report Type: 
  Country: None (occurrence: None)
  Receive Date: 20100720
  Receipt Date: 20100712
  Transmission Date: 20110219
  Serious: Yes (Hospitalization)
  Sender: FDA-Public Use
  Company Number: JP-EISAI INC.-E3810-03581-SPO-JP

PATIENT
  Age: 68 Year
  Sex: Female

DRUGS (7)
  1. PARIET (RABEPRAZOLE) [Suspect]
     Indication: REFLUX OESOPHAGITIS
     Route: 048
     Dates: start: 20090107, end: 20100303
  2. PARIET (RABEPRAZOLE) [Suspect]
     Route: 048
     Dates: start: 20081201, end: 20090101
  3. PARIET (RABEPRAZOLE) [Suspect]
     Dosage: UNKNOWN
     Route: 048
  4. MICARDIS [Concomitant]
     Indication: HYPERTENSION
     Route: 048
     Dates: start: 20100107, end: 20100114
  5. PRECIPITATED CALCIUM CARBONATE [Concomitant]
     Dates: start: 20020101
  6. ASPIRIN [Concomitant]
  7. LASIX [Concomitant]
     Route: 048
     Dates: start: 20020101

REACTIONS (1)
  - CHRONIC GASTROINTESTINAL BLEEDING [None]
